FAERS Safety Report 5585834-2 (Version None)
Quarter: 2008Q1

REPORT INFORMATION
  Report Type: 
  Country: None (occurrence: None)
  Receive Date: 20080109
  Receipt Date: 20071001
  Transmission Date: 20080703
  Serious: Yes (Life-Threatening, Hospitalization)
  Sender: FDA-Public Use
  Company Number: ES-RANBAXY-2007RR-10806

PATIENT

DRUGS (7)
  1. CLARITROMICINA RANBAXY 250MG COMPRIMIDOS EFG [Suspect]
     Dosage: 500 MG, BID
     Route: 048
     Dates: start: 20051207, end: 20051214
  2. LANACORDIN PEDIATRIC [Suspect]
     Dosage: 2 ML, QD
     Route: 048
     Dates: start: 20031205
  3. SEGURIL [Suspect]
     Dosage: 60 MG, QD
     Route: 048
     Dates: start: 20031205
  4. ALDACTONE [Suspect]
     Dosage: UNK
     Route: 048
     Dates: start: 20030101
  5. LEVOTHYROXINE SODIUM [Suspect]
     Dosage: 25 UG, SINGLE
     Route: 048
     Dates: start: 20031205
  6. BESITRAN [Suspect]
     Dosage: 25 MG, SINGLE
     Route: 048
     Dates: start: 20031205
  7. ORFIDAL WYETH [Suspect]
     Dosage: 1 MG, SINGLE
     Route: 048
     Dates: start: 20031205

REACTIONS (1)
  - HYPONATRAEMIA [None]
